FAERS Safety Report 6858700-X (Version None)
Quarter: 2010Q3

REPORT INFORMATION
  Report Type: 
  Country: None (occurrence: None)
  Receive Date: 20100719
  Receipt Date: 20080205
  Transmission Date: 20110219
  Serious: No
  Sender: FDA-Public Use
  Company Number: US-PFIZER INC-2008014183

PATIENT
  Sex: Female
  Weight: 90.909 kg

DRUGS (8)
  1. CHANTIX [Suspect]
     Indication: SMOKING CESSATION THERAPY
     Dates: start: 20061101, end: 20071201
  2. VYTORIN [Concomitant]
     Indication: BLOOD CHOLESTEROL
  3. GEMFIBROZIL [Concomitant]
  4. ETODOLAC [Concomitant]
     Indication: PAIN IN EXTREMITY
  5. AMITRIPTYLINE HYDROCHLORIDE [Concomitant]
  6. VITAMINS [Concomitant]
  7. CALCIUM [Concomitant]
  8. LOVAZA [Concomitant]

REACTIONS (9)
  - ABDOMINAL DISCOMFORT [None]
  - DEPRESSION [None]
  - HEADACHE [None]
  - INAPPROPRIATE SCHEDULE OF DRUG ADMINISTRATION [None]
  - INSOMNIA [None]
  - NAUSEA [None]
  - NIGHTMARE [None]
  - PAIN IN EXTREMITY [None]
  - PARAESTHESIA [None]
